FAERS Safety Report 4550749-5 (Version None)
Quarter: 2004Q4

REPORT INFORMATION
  Report Type: 
  Country: None (occurrence: None)
  Receive Date: 20041217
  Receipt Date: 20040920
  Transmission Date: 20050328
  Serious: No
  Sender: FDA-Public Use
  Company Number: 2004-BP-08535BP

PATIENT
  Age: 75 Year
  Sex: Female

DRUGS (15)
  1. SPIRIVA [Suspect]
     Indication: ASTHMA
     Dosage: 18 MCG (18 MCG), IH
     Route: 055
  2. SPIRIVA [Suspect]
     Indication: CHRONIC OBSTRUCTIVE AIRWAYS DISEASE
     Dosage: 18 MCG (18 MCG), IH
     Route: 055
  3. SPIRIVA [Suspect]
  4. DIGOXIN [Concomitant]
  5. ISOSORBIDE (ISOSORBIDE) [Concomitant]
  6. AVANDIA [Concomitant]
  7. VERAPAMIL [Concomitant]
  8. THEOPHYLLINE [Concomitant]
  9. LIPITOR [Concomitant]
  10. NEXIUM [Concomitant]
  11. ALBUTEROL [Concomitant]
  12. CENTRUM (CENTRUM) [Concomitant]
  13. LANOXIN [Concomitant]
  14. AMBIEN [Concomitant]
  15. ADVAIR (SERETIDE MITE) [Concomitant]

REACTIONS (3)
  - COUGH [None]
  - PRODUCTIVE COUGH [None]
  - THROAT IRRITATION [None]
